FAERS Safety Report 12172427 (Version 1)
Quarter: 2016Q1

REPORT INFORMATION
  Report Type: Spontaneous
  Country: US (occurrence: US)
  Receive Date: 20160311
  Receipt Date: 20160311
  Transmission Date: 20160526
  Serious: Yes (Disabling)
  Sender: FDA-Public Use
  Company Number: US-CELGENEUS-USA-2016032043

PATIENT
  Sex: Female
  Weight: 119 kg

DRUGS (1)
  1. REVLIMID [Suspect]
     Active Substance: LENALIDOMIDE
     Indication: PLASMA CELL MYELOMA
     Dosage: 25 MILLIGRAM
     Route: 048
     Dates: start: 20160202

REACTIONS (7)
  - Tachyphrenia [Unknown]
  - Fatigue [Unknown]
  - Oedema peripheral [Unknown]
  - Erythema [Unknown]
  - Diarrhoea [Unknown]
  - Pyrexia [Unknown]
  - Rash [Unknown]
